FAERS Safety Report 14045696 (Version 4)
Quarter: 2017Q4

REPORT INFORMATION
  Report Type: Spontaneous
  Country: IT (occurrence: IT)
  Receive Date: 20171005
  Receipt Date: 20171228
  Transmission Date: 20180321
  Serious: Yes (Other)
  Sender: FDA-Public Use
  Company Number: IT-VELOXIS PHARMACEUTICALS-2028806

PATIENT
  Age: 53 Year
  Sex: Male
  Weight: 57 kg

DRUGS (6)
  1. REGORAFENIB [Suspect]
     Active Substance: REGORAFENIB
  2. DILATREND [Concomitant]
     Active Substance: CARVEDILOL
     Route: 048
  3. ENVARSUS XR [Suspect]
     Active Substance: TACROLIMUS
     Indication: LIVER TRANSPLANT
     Route: 048
     Dates: start: 201505
  4. EVEROLIMUS. [Suspect]
     Active Substance: EVEROLIMUS
     Dates: start: 201512
  5. AMLODIPINE [Concomitant]
     Active Substance: AMLODIPINE BESYLATE
  6. REGORAFENIB [Suspect]
     Active Substance: REGORAFENIB
     Route: 048
     Dates: start: 20170418

REACTIONS (2)
  - Palmar-plantar erythrodysaesthesia syndrome [Recovering/Resolving]
  - Drug interaction [Unknown]

NARRATIVE: CASE EVENT DATE: 20170418
